FAERS Safety Report 7127858-X (Version None)
Quarter: 2010Q4

REPORT INFORMATION
  Report Type: 
  Country: None (occurrence: None)
  Receive Date: 20101029
  Receipt Date: 20100726
  Transmission Date: 20110411
  Serious: No
  Sender: FDA-Public Use
  Company Number: US-003329

PATIENT
  Sex: Male
  Weight: 83.4619 kg

DRUGS (1)
  1. FIRMAGON [Suspect]
     Indication: PROSTATE CANCER
     Dosage: (SUBCUTANEOUS)
     Route: 058
     Dates: start: 20100712

REACTIONS (3)
  - ASTHENIA [None]
  - DIZZINESS [None]
  - FATIGUE [None]
